FAERS Safety Report 4937205-7 (Version None)
Quarter: 2006Q1

REPORT INFORMATION
  Report Type: 
  Country: None (occurrence: None)
  Receive Date: 20060309
  Receipt Date: 20060302
  Transmission Date: 20060701
  Serious: Yes (Life-Threatening, Hospitalization)
  Sender: FDA-Public Use
  Company Number: PHBS2006FI03332

PATIENT
  Age: 50 Year
  Sex: Male

DRUGS (3)
  1. MAREVAN [Concomitant]
  2. BISOPROLOL [Concomitant]
  3. CANEF (LICENSED TO ASTRA) [Suspect]
     Dosage: 40 MG, QD
     Route: 048

REACTIONS (2)
  - LOSS OF CONSCIOUSNESS [None]
  - PANCREATITIS [None]
